FAERS Safety Report 5787808-5 (Version None)
Quarter: 2008Q2

REPORT INFORMATION
  Report Type: 
  Country: None (occurrence: None)
  Receive Date: 20080625
  Receipt Date: 20080616
  Transmission Date: 20081010
  Serious: Yes (Other)
  Sender: FDA-Public Use
  Company Number: PHHY2008DE11267

PATIENT
  Sex: Male

DRUGS (7)
  1. DIOVAN [Suspect]
     Dosage: UNK
     Dates: start: 20080601
  2. ASPIRIN [Concomitant]
     Dosage: 100 MG/D
  3. SIMVASTATIN [Concomitant]
     Dosage: 20 MG/D
  4. METFORMIN HCL [Concomitant]
     Indication: DIABETES MELLITUS
     Dosage: 0.5 DF/D
  5. DIGOXIN [Concomitant]
  6. METOHEXAL [Concomitant]
  7. TAMSULOSIN HCL [Concomitant]

REACTIONS (1)
  - BLOOD GLUCOSE INCREASED [None]
